FAERS Safety Report 10661994 (Version 2)
Quarter: 2015Q3

REPORT INFORMATION
  Report Type: Spontaneous
  Country: FR (occurrence: FR)
  Receive Date: 20141218
  Receipt Date: 20150902
  Transmission Date: 20151125
  Serious: Yes (Hospitalization, Other)
  Sender: FDA-Public Use
  Company Number: FR-ASTRAZENECA-2014SE95915

PATIENT
  Age: 46 Year
  Sex: Female

DRUGS (12)
  1. BACTRIM [Suspect]
     Active Substance: SULFAMETHOXAZOLE\TRIMETHOPRIM
     Indication: ANTIFUNGAL PROPHYLAXIS
     Dosage: ONE DOSAGE FORM THREE TIMES WEEKLY (ONE DOSAGE FORM IN THE MORNING ON MONDAY, WEDNESDAY AND FRIDAY)
     Route: 048
     Dates: start: 20140926, end: 20141024
  2. PREDNISONE. [Concomitant]
     Active Substance: PREDNISONE
  3. CALCIT VIT D3 [Concomitant]
     Dates: end: 201409
  4. CORTANCYL [Concomitant]
     Active Substance: PREDNISONE
     Dosage: 1 MG PER KILOGRAMS
     Dates: start: 20131007
  5. INEXIUM [Suspect]
     Active Substance: ESOMEPRAZOLE
     Route: 048
     Dates: end: 20141031
  6. BACTRIM [Suspect]
     Active Substance: SULFAMETHOXAZOLE\TRIMETHOPRIM
     Indication: ANTIFUNGAL PROPHYLAXIS
     Route: 048
     Dates: start: 20141117
  7. CORTANCYL [Concomitant]
     Active Substance: PREDNISONE
  8. FORLAX [Concomitant]
     Active Substance: POLYETHYLENE GLYCOL 4000
  9. ACTONEL [Concomitant]
     Active Substance: RISEDRONATE SODIUM
     Dates: end: 201409
  10. PRAVASTATIN [Suspect]
     Active Substance: PRAVASTATIN\PRAVASTATIN SODIUM
     Route: 048
     Dates: start: 20141002, end: 20141031
  11. INEXIUM [Suspect]
     Active Substance: ESOMEPRAZOLE
     Route: 048
     Dates: start: 20141202
  12. CORTANCYL [Concomitant]
     Active Substance: PREDNISONE
     Dates: start: 201403

REACTIONS (27)
  - Pemphigus [Unknown]
  - Noninfective bronchitis [Unknown]
  - Weight decreased [Unknown]
  - Alanine aminotransferase increased [Recovered/Resolved]
  - Nasal septum perforation [Recovered/Resolved]
  - Hepatitis A antibody positive [Unknown]
  - Hyperpyrexia [Recovered/Resolved]
  - Blood fibrinogen increased [Unknown]
  - Pyelonephritis acute [Unknown]
  - Blood alkaline phosphatase increased [Recovered/Resolved]
  - Blood creatinine increased [Unknown]
  - Aspartate aminotransferase increased [Recovered/Resolved]
  - Gamma-glutamyltransferase increased [Recovered/Resolved]
  - Immunodeficiency [Unknown]
  - Inflammation [Unknown]
  - Neutrophil count increased [Unknown]
  - Hypercalcaemia [Unknown]
  - Viral infection [Unknown]
  - Haemorrhage urinary tract [Unknown]
  - Nausea [Unknown]
  - Drug-induced liver injury [Unknown]
  - Lactobacillus test positive [Unknown]
  - Asthenia [Unknown]
  - Mucosal erosion [Unknown]
  - Haematuria [Unknown]
  - Dyslipidaemia [Unknown]
  - Lacrimation increased [Unknown]

NARRATIVE: CASE EVENT DATE: 2012
